FAERS Safety Report 25086907 (Version 1)
Quarter: 2025Q1

REPORT INFORMATION
  Report Type: Spontaneous
  Country: JP (occurrence: JP)
  Receive Date: 20250318
  Receipt Date: 20250318
  Transmission Date: 20250408
  Serious: Yes (Other)
  Sender: SANOFI AVENTIS
  Company Number: JP-SAKK-2025SA072803AA

PATIENT
  Age: 30 Year
  Sex: Female

DRUGS (1)
  1. ENJAYMO [Suspect]
     Active Substance: SUTIMLIMAB-JOME
     Indication: Cold type haemolytic anaemia
     Route: 041
     Dates: start: 20221013

REACTIONS (2)
  - Pancytopenia [Not Recovered/Not Resolved]
  - Infection [Unknown]

NARRATIVE: CASE EVENT DATE: 20250312
